FAERS Safety Report 8269800-4 (Version None)
Quarter: 2012Q2

REPORT INFORMATION
  Report Type: 
  Country: None (occurrence: None)
  Receive Date: 20120405
  Receipt Date: 20120323
  Transmission Date: 20120825
  Serious: Yes (Other)
  Sender: FDA-Public Use
  Company Number: 2012P1009791

PATIENT
  Age: 61 Year
  Sex: Female
  Weight: 64.4108 kg

DRUGS (6)
  1. ALENDRONATE SODIUM [Concomitant]
  2. IBUPROFEN [Concomitant]
  3. VITAMIN D [Concomitant]
  4. LOSARTAN POTASSIUM [Suspect]
     Dosage: 100 MG;QD; 50 MG;QD
     Dates: start: 20120220, end: 20120301
  5. LOSARTAN POTASSIUM [Suspect]
     Dosage: 100 MG;QD; 50 MG;QD
     Dates: start: 20120301, end: 20120313
  6. CLONAZEPAM [Concomitant]

REACTIONS (14)
  - DEFAECATION URGENCY [None]
  - CHEST DISCOMFORT [None]
  - DRUG DOSE OMISSION [None]
  - ATRIAL FIBRILLATION [None]
  - DYSPNOEA [None]
  - BLOOD PRESSURE INCREASED [None]
  - ABDOMINAL PAIN UPPER [None]
  - HEART RATE IRREGULAR [None]
  - DYSPHONIA [None]
  - PALPITATIONS [None]
  - DRUG INEFFECTIVE [None]
  - STRESS [None]
  - INFLUENZA [None]
  - IMPAIRED WORK ABILITY [None]
